FAERS Safety Report 20040826 (Version 1)
Quarter: 2021Q4

REPORT INFORMATION
  Report Type: Spontaneous
  Country: US (occurrence: US)
  Receive Date: 20211107
  Receipt Date: 20211107
  Transmission Date: 20220303
  Serious: Yes (Other)
  Sender: FDA-Public Use
  Company Number: US-SA-SAC20211104000108

PATIENT
  Age: 12 Year
  Sex: Female
  Weight: 44.5 kg

DRUGS (8)
  1. DUPIXENT [Suspect]
     Active Substance: DUPILUMAB
     Indication: Dermatitis atopic
     Dosage: 200 MG, QOW
     Route: 058
     Dates: start: 202105
  2. FLUTICASONE PROPIONATE [Concomitant]
     Active Substance: FLUTICASONE PROPIONATE
     Dosage: SPRAY
  3. BENADRYL [Concomitant]
     Active Substance: DIPHENHYDRAMINE HYDROCHLORIDE
  4. HYDROCORTISONE [Concomitant]
     Active Substance: HYDROCORTISONE
  5. CLARITIN-D 12 HOUR [Concomitant]
     Active Substance: LORATADINE\PSEUDOEPHEDRINE SULFATE
  6. MUPIROCIN [Concomitant]
     Active Substance: MUPIROCIN
  7. AVEENO ANTI-ITCH [CALAMINE;PRAMOCAINE HYDROCHLORIDE] [Concomitant]
  8. VITAMINS NOS [Concomitant]
     Active Substance: VITAMINS

REACTIONS (4)
  - Dermatitis exfoliative [Unknown]
  - Skin exfoliation [Unknown]
  - COVID-19 [Unknown]
  - SARS-CoV-2 test positive [Unknown]

NARRATIVE: CASE EVENT DATE: 20210101
